FAERS Safety Report 9011882 (Version 1)
Quarter: 2013Q1

REPORT INFORMATION
  Report Type: Spontaneous
  Country: GB (occurrence: GB)
  Receive Date: 20130114
  Receipt Date: 20130114
  Transmission Date: 20140127
  Serious: Yes (Other)
  Sender: FDA-Public Use
  Company Number: GB-BIOGENIDEC-2012BI046519

PATIENT
  Sex: Female

DRUGS (3)
  1. TYSABRI [Suspect]
     Indication: MULTIPLE SCLEROSIS
     Route: 042
     Dates: start: 201003, end: 20120511
  2. ZOLIPIDEM [Concomitant]
     Indication: INSOMNIA
     Dates: end: 20120519
  3. VENLAFAXINE [Concomitant]

REACTIONS (3)
  - Oligohydramnios [Unknown]
  - Ureteric dilatation [Unknown]
  - Urinary tract obstruction [Unknown]
